FAERS Safety Report 12845650 (Version 4)
Quarter: 2019Q3

REPORT INFORMATION
  Report Type: Spontaneous
  Country: US (occurrence: US)
  Receive Date: 20161013
  Receipt Date: 20190814
  Transmission Date: 20191004
  Serious: Yes (Hospitalization)
  Sender: FDA-Public Use
  Company Number: US-ACTELION-A-US2016-143471

PATIENT
  Age: 63 Year
  Sex: Male

DRUGS (1)
  1. OPSUMIT [Suspect]
     Active Substance: MACITENTAN
     Indication: PULMONARY ARTERIAL HYPERTENSION
     Dosage: 10 MG, QD
     Route: 048
     Dates: start: 20160924

REACTIONS (8)
  - Erythema [Recovered/Resolved]
  - Pain [Unknown]
  - Flushing [Recovered/Resolved]
  - Blood sodium decreased [Recovered/Resolved]
  - Muscle spasms [Unknown]
  - Pain in extremity [Unknown]
  - Peripheral swelling [Recovered/Resolved]
  - Muscular weakness [Unknown]

NARRATIVE: CASE EVENT DATE: 20160928
